FAERS Safety Report 5196488-1 (Version None)
Quarter: 2006Q4

REPORT INFORMATION
  Report Type: 
  Country: None (occurrence: None)
  Receive Date: 20061227
  Receipt Date: 20061212
  Transmission Date: 20070319
  Serious: Yes (Hospitalization)
  Sender: FDA-Public Use
  Company Number: 2006JP005283

PATIENT
  Age: 30 Year
  Sex: Male
  Weight: 61 kg

DRUGS (1)
  1. PROGRAF [Suspect]
     Dosage: ORAL
     Route: 048
     Dates: start: 20050905

REACTIONS (2)
  - CHEST PAIN [None]
  - PNEUMONIA [None]
